FAERS Safety Report 12290946 (Version 2)
Quarter: 2016Q2

REPORT INFORMATION
  Report Type: Spontaneous
  Country: US (occurrence: US)
  Receive Date: 20160421
  Receipt Date: 20160517
  Transmission Date: 20160815
  Serious: Yes (Disabling, Other)
  Sender: FDA-Public Use
  Company Number: US-BAYER-2016-075107

PATIENT
  Age: 22 Year
  Sex: Female
  Weight: 95.7 kg

DRUGS (1)
  1. SKYLA [Suspect]
     Active Substance: LEVONORGESTREL
     Indication: CONTRACEPTION
     Dosage: 14 MCG/24HR, CONT
     Route: 015
     Dates: start: 20160212, end: 20160415

REACTIONS (4)
  - Abdominal pain [None]
  - Nausea [None]
  - Embedded device [None]
  - Genital haemorrhage [None]

NARRATIVE: CASE EVENT DATE: 20160212
